FAERS Safety Report 17058666 (Version 2)
Quarter: 2020Q2

REPORT INFORMATION
  Report Type: Spontaneous
  Country: US (occurrence: US)
  Receive Date: 20191121
  Receipt Date: 20200407
  Transmission Date: 20200713
  Serious: Yes (Other)
  Sender: FDA-Public Use
  Company Number: US-SUPERNUS PHARMACEUTICALS, INC.-2019SUP00527

PATIENT
  Age: 76 Year
  Sex: Female

DRUGS (2)
  1. OXTELLAR XR [Suspect]
     Active Substance: OXCARBAZEPINE
     Dosage: ONCE
  2. UNSPECIFIED MEDICATION [Suspect]
     Active Substance: UNSPECIFIED INGREDIENT

REACTIONS (13)
  - Inner ear disorder [Unknown]
  - Feeling drunk [Unknown]
  - Deafness [Unknown]
  - Cerebrovascular accident [Unknown]
  - Eye haemorrhage [Unknown]
  - Gastrointestinal disorder [Not Recovered/Not Resolved]
  - Dizziness [Unknown]
  - Seizure [Unknown]
  - Unevaluable event [Not Recovered/Not Resolved]
  - Gait disturbance [Unknown]
  - Malaise [Not Recovered/Not Resolved]
  - Feeling abnormal [Unknown]
  - Middle ear disorder [Not Recovered/Not Resolved]

NARRATIVE: CASE EVENT DATE: 2019
